FAERS Safety Report 15297417 (Version 5)
Quarter: 2018Q4

REPORT INFORMATION
  Report Type: Report from Study
  Country: US (occurrence: US)
  Receive Date: 20180820
  Receipt Date: 20181101
  Transmission Date: 20190204
  Serious: Yes (Other)
  Sender: FDA-Public Use
  Company Number: US-CLOVIS ONCOLOGY-CLO-2018-001011

PATIENT
  Age: 50 Year
  Sex: Female

DRUGS (1)
  1. RUBRACA [Suspect]
     Active Substance: RUCAPARIB CAMSYLATE
     Indication: OVARIAN CANCER
     Dosage: 600 MG, BID
     Route: 048
     Dates: start: 20180727, end: 2018

REACTIONS (13)
  - Chest pain [Not Recovered/Not Resolved]
  - Haemorrhoidal haemorrhage [Unknown]
  - Haemorrhage [Unknown]
  - Fatigue [Unknown]
  - Constipation [Not Recovered/Not Resolved]
  - Tumour marker increased [Unknown]
  - Peripheral swelling [Not Recovered/Not Resolved]
  - Chest discomfort [Unknown]
  - Flatulence [Not Recovered/Not Resolved]
  - Malignant neoplasm progression [Unknown]
  - Dysgeusia [Unknown]
  - Pruritus [Unknown]
  - Product dose omission [Unknown]

NARRATIVE: CASE EVENT DATE: 2018
